FAERS Safety Report 9793241 (Version 1)
Quarter: 2013Q4

REPORT INFORMATION
  Report Type: Spontaneous
  Country: US (occurrence: None)
  Receive Date: 20131231
  Receipt Date: 20131231
  Transmission Date: 20140711
  Serious: Yes (Death)
  Sender: FDA-Public Use
  Company Number: None

PATIENT
  Age: 93 Year
  Sex: Female
  Weight: 53 kg

DRUGS (16)
  1. SULFAMETHOXAZOLE/TRIMETHOPRIM [Suspect]
     Indication: CELLULITIS
     Dosage: 800/160
  2. ARTHRITIS CREAM [Concomitant]
  3. BACTRIM [Concomitant]
  4. MILK OF MAGNESIA [Concomitant]
  5. NAMENDA [Concomitant]
  6. PROTONIX [Concomitant]
  7. TYLENOL [Concomitant]
  8. BISACODYL [Concomitant]
  9. BUMETANIDE [Concomitant]
  10. CARBIDOPA-LEVODOPA [Concomitant]
  11. DILTIAZEM [Concomitant]
  12. DOCUSATE SODIUM [Concomitant]
  13. FERROUS SULFATE [Concomitant]
  14. METOPROLOL TARTRATE [Suspect]
  15. NITROGLYCERIN [Suspect]
  16. WARFARIN [Concomitant]

REACTIONS (3)
  - Angioedema [None]
  - Pulmonary oedema [None]
  - Cardiac failure [None]
